FAERS Safety Report 8990544 (Version 1)
Quarter: 2012Q4

REPORT INFORMATION
  Report Type: 
  Country: US (occurrence: US)
  Receive Date: 20121228
  Receipt Date: 20121228
  Transmission Date: 20130627
  Serious: Yes (Other)
  Sender: FDA-Public Use
  Company Number: US-BRISTOL-MYERS SQUIBB COMPANY-17223249

PATIENT
  Age: 3 Year
  Sex: Male

DRUGS (6)
  1. ABILIFY [Suspect]
     Indication: BIPOLAR DISORDER
     Dosage: then increased to 5mg to 10mg to 20mg to 30mg maybe even 40mg
     Route: 064
  2. SEROQUEL [Concomitant]
  3. TRILEPTAL [Concomitant]
  4. TRAZODONE HCL [Concomitant]
  5. VALIUM [Concomitant]
     Indication: INSOMNIA
  6. KLONOPIN [Concomitant]
     Dosage: Dose reduced to 0.25mg

REACTIONS (2)
  - Autism [Unknown]
  - Developmental delay [Unknown]
